FAERS Safety Report 16203647 (Version 1)
Quarter: 2019Q2

REPORT INFORMATION
  Report Type: Spontaneous
  Country: US (occurrence: US)
  Receive Date: 20190416
  Receipt Date: 20190416
  Transmission Date: 20190711
  Serious: Yes (Other)
  Sender: FDA-Public Use
  Company Number: US-AMGEN-USASP2019057965

PATIENT

DRUGS (1)
  1. TALIMOGENE LAHERPAREPVEC [Suspect]
     Active Substance: TALIMOGENE LAHERPAREPVEC
     Indication: MELANOMA RECURRENT
     Dosage: UNK
     Route: 065

REACTIONS (5)
  - Tumour pseudoprogression [Unknown]
  - Skin necrosis [Unknown]
  - Pyrexia [Unknown]
  - Infection [Unknown]
  - Herpes simplex [Unknown]
